FAERS Safety Report 5670293-1 (Version None)
Quarter: 2008Q1

REPORT INFORMATION
  Report Type: 
  Country: None (occurrence: None)
  Receive Date: 20080314
  Receipt Date: 20080314
  Transmission Date: 20080703
  Serious: Yes (Other)
  Sender: FDA-Public Use
  Company Number: None

PATIENT
  Age: 29 Year
  Sex: Female

DRUGS (1)
  1. TRAMADOL HCL [Suspect]
     Dosage: ONCE Q6H PRN FOR PAIN ORAL DOSE
     Route: 048
     Dates: start: 20071031

REACTIONS (1)
  - OEDEMA PERIPHERAL [None]
